FAERS Safety Report 25510713 (Version 1)
Quarter: 2025Q3

REPORT INFORMATION
  Report Type: Spontaneous
  Country: GB (occurrence: GB)
  Receive Date: 20250703
  Receipt Date: 20250703
  Transmission Date: 20251020
  Serious: Yes (Other)
  Sender: ZAMBON
  Company Number: GB-ZAMBON-202502357GBR

PATIENT

DRUGS (1)
  1. FOSFOMYCIN TROMETHAMINE [Suspect]
     Active Substance: FOSFOMYCIN TROMETHAMINE
     Indication: Product used for unknown indication
     Route: 065

REACTIONS (5)
  - Autoimmune hepatitis [Unknown]
  - Ataxia [Unknown]
  - Organ failure [Unknown]
  - Spinal stenosis [Unknown]
  - Asthenia [Unknown]
